FAERS Safety Report 10526932 (Version 4)
Quarter: 2014Q4

REPORT INFORMATION
  Report Type: Spontaneous
  Country: CN (occurrence: CN)
  Receive Date: 20141020
  Receipt Date: 20141111
  Transmission Date: 20150528
  Serious: Yes (Hospitalization)
  Sender: FDA-Public Use
  Company Number: CN-ROCHE-1475245

PATIENT
  Age: 55 Year
  Sex: Female
  Weight: 55 kg

DRUGS (7)
  1. ASPIRIN. [Concomitant]
     Active Substance: ASPIRIN
  2. METHOTREXATE [Concomitant]
     Active Substance: METHOTREXATE
     Indication: SJOGREN^S SYNDROME
  3. ACTEMRA [Suspect]
     Active Substance: TOCILIZUMAB
     Indication: SJOGREN^S SYNDROME
     Dosage: 8.5 MG/KG
     Route: 041
     Dates: start: 20141010
  4. ACTEMRA [Suspect]
     Active Substance: TOCILIZUMAB
     Indication: HISTIOCYTOSIS
     Route: 041
     Dates: start: 20140808
  5. ACTEMRA [Suspect]
     Active Substance: TOCILIZUMAB
     Indication: BREAST HYPERPLASIA
     Route: 041
     Dates: start: 20140907
  6. METHOTREXATE [Concomitant]
     Active Substance: METHOTREXATE
     Indication: HISTIOCYTOSIS
  7. METHOTREXATE [Concomitant]
     Active Substance: METHOTREXATE
     Indication: BREAST HYPERPLASIA

REACTIONS (2)
  - Lacunar infarction [Not Recovered/Not Resolved]
  - Demyelination [Not Recovered/Not Resolved]

NARRATIVE: CASE EVENT DATE: 201410
